FAERS Safety Report 12756337 (Version 3)
Quarter: 2016Q4

REPORT INFORMATION
  Report Type: Spontaneous
  Country: US (occurrence: US)
  Receive Date: 20160916
  Receipt Date: 20161128
  Transmission Date: 20170207
  Serious: Yes (Other)
  Sender: FDA-Public Use
  Company Number: US-RELYPSA-RLY2016002374

PATIENT
  Age: 84 Year
  Sex: Female

DRUGS (4)
  1. SIMVASTATIN. [Concomitant]
     Active Substance: SIMVASTATIN
  2. VELTASSA [Suspect]
     Active Substance: PATIROMER
     Indication: HYPERTENSION
     Dosage: 8.4 G, QD
     Route: 048
     Dates: start: 20160719, end: 201608
  3. GLIPIZIDE. [Concomitant]
     Active Substance: GLIPIZIDE
  4. CARVEDILOL. [Concomitant]
     Active Substance: CARVEDILOL

REACTIONS (1)
  - Loss of consciousness [Recovered/Resolved]

NARRATIVE: CASE EVENT DATE: 20160803
